FAERS Safety Report 5404455-5 (Version None)
Quarter: 2007Q3

REPORT INFORMATION
  Report Type: 
  Country: None (occurrence: None)
  Receive Date: 20070802
  Receipt Date: 20070723
  Transmission Date: 20080115
  Serious: Yes (Other)
  Sender: FDA-Public Use
  Company Number: US-PFIZER INC-2007061862

PATIENT
  Sex: Female
  Weight: 105.5 kg

DRUGS (2)
  1. CHANTIX [Suspect]
     Indication: SMOKING CESSATION THERAPY
  2. MULTIVITAMIN [Concomitant]

REACTIONS (5)
  - CRYING [None]
  - DEPRESSION [None]
  - NAUSEA [None]
  - SMOKER [None]
  - WEIGHT DECREASED [None]
